FAERS Safety Report 23262718 (Version 1)
Quarter: 2023Q4

REPORT INFORMATION
  Report Type: Spontaneous
  Country: US (occurrence: None)
  Receive Date: 20231204
  Receipt Date: 20231204
  Transmission Date: 20240110
  Serious: Yes (Death)
  Sender: FDA-Public Use
  Company Number: None

PATIENT
  Age: 83 Year
  Sex: Male

DRUGS (14)
  1. RAYALDEE [Suspect]
     Active Substance: CALCIFEDIOL
     Dosage: FREQUENCY : 3 TIMES A WEEK;?
     Route: 048
     Dates: start: 20191206
  2. RAYALDEE [Suspect]
     Active Substance: CALCIFEDIOL
     Dosage: FREQUENCY : 3 TIMES A WEEK;?
     Route: 048
  3. TAMSULOSIN [Concomitant]
  4. ALLOPURINOL [Concomitant]
  5. BREZTRI AERO SPHERE [Concomitant]
  6. LOSARTAN [Concomitant]
     Active Substance: LOSARTAN
  7. ALBUTEROL SULFATE [Concomitant]
     Active Substance: ALBUTEROL SULFATE
  8. CARVEDILOL [Concomitant]
     Active Substance: CARVEDILOL
  9. PANTOPRAZOL [Concomitant]
  10. ASPIRIN EC LOW [Concomitant]
  11. ATORVASTATIN [Concomitant]
  12. CARVEDILOL [Concomitant]
  13. FERROUS SULFATE [Concomitant]
     Active Substance: FERROUS SULFATE
  14. FUROSEMIDE [Concomitant]

REACTIONS (1)
  - Death [None]

NARRATIVE: CASE EVENT DATE: 20231202
